FAERS Safety Report 8854742 (Version 1)
Quarter: 2012Q4

REPORT INFORMATION
  Report Type: 
  Country: US (occurrence: US)
  Receive Date: 20121023
  Receipt Date: 20121023
  Transmission Date: 20130627
  Serious: Yes (Hospitalization)
  Sender: FDA-Public Use
  Company Number: US-MYLANLABS-2012S1021221

PATIENT
  Age: 43 Year
  Sex: Female

DRUGS (2)
  1. VENLAFAXINE [Suspect]
     Indication: INTENTIONAL OVERDOSE
     Route: 048
  2. ZOLPIDEM [Suspect]
     Route: 048

REACTIONS (3)
  - Intentional overdose [Recovering/Resolving]
  - Hypotension [Recovered/Resolved]
  - Mental status changes [Unknown]
